FAERS Safety Report 8789473 (Version 1)
Quarter: 2012Q4

REPORT INFORMATION
  Report Type: Spontaneous
  Country: None (occurrence: None)
  Receive Date: 20120906
  Receipt Date: 20120906
  Transmission Date: 20130627
  Serious: Yes (Hospitalization, Other)
  Sender: FDA-Public Use
  Company Number: AUR-APL-2012-03650

PATIENT
  Age: 35 Year
  Sex: Male

DRUGS (1)
  1. CIPROFLOXACIN (CIPROFLOXACIN) [Suspect]
     Indication: URINARY INFECTION
     Dates: start: 20120804, end: 20120806

REACTIONS (11)
  - Muscular weakness [None]
  - Immobile [None]
  - Arthritis [None]
  - Sensory loss [None]
  - Hypoaesthesia [None]
  - Sensation of heaviness [None]
  - Pain [None]
  - Heart rate increased [None]
  - Anaphylactic shock [None]
  - Pain [None]
  - Arthropathy [None]
